FAERS Safety Report 17122173 (Version 1)
Quarter: 2019Q4

REPORT INFORMATION
  Report Type: Spontaneous
  Country: CA (occurrence: CA)
  Receive Date: 20191206
  Receipt Date: 20191206
  Transmission Date: 20200122
  Serious: Yes (Life-Threatening, Other)
  Sender: FDA-Public Use
  Company Number: CA-PFIZER INC-2019521794

PATIENT
  Age: 89 Year
  Sex: Female

DRUGS (4)
  1. PHYTOMENADIONE [Suspect]
     Active Substance: PHYTONADIONE
     Indication: INTERNATIONAL NORMALISED RATIO INCREASED
  2. PHYTOMENADIONE [Suspect]
     Active Substance: PHYTONADIONE
     Indication: PREMEDICATION
     Dosage: 2 MG, SINGLE
     Route: 040
  3. PHYTOMENADIONE [Suspect]
     Active Substance: PHYTONADIONE
     Indication: PREMEDICATION
     Dosage: 2 MG, UNK
     Route: 040
  4. PHYTOMENADIONE [Suspect]
     Active Substance: PHYTONADIONE
     Indication: INTERNATIONAL NORMALISED RATIO INCREASED
     Dosage: 2 MG, UNK
     Route: 048

REACTIONS (8)
  - Flushing [Recovered/Resolved]
  - Respiratory failure [Recovered/Resolved]
  - Resuscitation [Recovered/Resolved]
  - Incorrect route of product administration [Recovered/Resolved]
  - Incorrect drug administration rate [Recovered/Resolved]
  - Cyanosis [Recovered/Resolved]
  - Pulse absent [Recovered/Resolved]
  - Loss of consciousness [Recovered/Resolved]
